FAERS Safety Report 13402431 (Version 2)
Quarter: 2017Q2

REPORT INFORMATION
  Report Type: Spontaneous
  Country: US (occurrence: US)
  Receive Date: 20170404
  Receipt Date: 20170605
  Transmission Date: 20170830
  Serious: No
  Sender: FDA-Public Use
  Company Number: US-009507513-1703USA007237

PATIENT
  Age: 61 Year
  Sex: Male

DRUGS (3)
  1. INTRON A [Suspect]
     Active Substance: INTERFERON ALFA-2B
     Dosage: 2 FULL VIALS (20 MU), UNK
     Route: 058
  2. INTRON A [Suspect]
     Active Substance: INTERFERON ALFA-2B
     Indication: MYCOSIS FUNGOIDES
     Dosage: 0.2 ML, EVERY MONDAY, WEDNESDAY, FRIDAY, STRENGTH REPORTED AS ^10 MM UNIT^
     Route: 058
     Dates: start: 20160906
  3. TARGRETIN [Concomitant]
     Active Substance: BEXAROTENE
     Dosage: UNK

REACTIONS (2)
  - Product use in unapproved indication [Unknown]
  - Accidental overdose [Unknown]

NARRATIVE: CASE EVENT DATE: 20160906
